FAERS Safety Report 15088039 (Version 1)
Quarter: 2018Q2

REPORT INFORMATION
  Report Type: Spontaneous
  Country: US (occurrence: US)
  Receive Date: 20180629
  Receipt Date: 20180629
  Transmission Date: 20180711
  Serious: No
  Sender: FDA-Public Use
  Company Number: US-TEVA-2018-US-916639

PATIENT
  Age: 32 Year
  Sex: Female

DRUGS (1)
  1. EQ MICON 7 DISPOSAL [Suspect]
     Active Substance: MICONAZOLE
     Route: 065

REACTIONS (2)
  - Pain [Unknown]
  - Burning sensation [Unknown]

NARRATIVE: CASE EVENT DATE: 20180619
